FAERS Safety Report 4851009-5 (Version None)
Quarter: 2005Q4

REPORT INFORMATION
  Report Type: 
  Country: None (occurrence: None)
  Receive Date: 20051212
  Receipt Date: 20051129
  Transmission Date: 20060501
  Serious: Yes (Disabling)
  Sender: FDA-Public Use
  Company Number: GB-MERCK-0511USA04622

PATIENT
  Age: 71 Year
  Sex: Male
  Weight: 87 kg

DRUGS (2)
  1. ZOCOR [Suspect]
     Indication: BLOOD CHOLESTEROL INCREASED
     Route: 048
     Dates: start: 20041222, end: 20050317
  2. ZOCOR [Suspect]
     Route: 048
     Dates: start: 20050318, end: 20050708

REACTIONS (3)
  - DEPRESSED MOOD [None]
  - IRRITABILITY [None]
  - TINNITUS [None]
